FAERS Safety Report 25838489 (Version 1)
Quarter: 2025Q3

REPORT INFORMATION
  Report Type: Spontaneous
  Country: JP (occurrence: JP)
  Receive Date: 20250923
  Receipt Date: 20250923
  Transmission Date: 20251020
  Serious: Yes (Other)
  Sender: SANOFI AVENTIS
  Company Number: JP-SA-2025SA280348

PATIENT
  Sex: Male

DRUGS (2)
  1. JEVTANA [Suspect]
     Active Substance: CABAZITAXEL
     Indication: Product used for unknown indication
     Route: 041
  2. JEVTANA [Suspect]
     Active Substance: CABAZITAXEL
     Route: 041

REACTIONS (1)
  - Pericardial effusion [Not Recovered/Not Resolved]
